FAERS Safety Report 4314889-8 (Version None)
Quarter: 2004Q1

REPORT INFORMATION
  Report Type: 
  Country: None (occurrence: None)
  Receive Date: 20040310
  Receipt Date: 20040310
  Transmission Date: 20041129
  Serious: Yes (Life-Threatening, Hospitalization)
  Sender: FDA-Public Use
  Company Number: None

PATIENT
  Age: 32 Year
  Sex: Female
  Weight: 112.4921 kg

DRUGS (4)
  1. CLOMIPHENE CITRATE [Suspect]
     Indication: INFERTILITY
     Dosage: TWO TABLET ONCE A DAY OPTHALAMIC
     Route: 047
     Dates: start: 20040120, end: 20040124
  2. THYROID TAB [Concomitant]
  3. ALBUTEROL SULFATE [Concomitant]
  4. SALMETEROL [Concomitant]

REACTIONS (2)
  - BLOOD TRIGLYCERIDES INCREASED [None]
  - PANCREATITIS [None]
